FAERS Safety Report 7520168-8 (Version None)
Quarter: 2011Q2

REPORT INFORMATION
  Report Type: 
  Country: None (occurrence: None)
  Receive Date: 20110602
  Receipt Date: 20110518
  Transmission Date: 20111010
  Serious: No
  Sender: FDA-Public Use
  Company Number: US-B.I. PHARMACEUTICALS,INC./RIDGEFIELD-2011-BP-13589BP

PATIENT
  Sex: Female

DRUGS (5)
  1. ALBUTEROL SULFATE AUTOHALER [Concomitant]
     Indication: CHRONIC OBSTRUCTIVE PULMONARY DISEASE
     Dates: start: 20060101
  2. SYMBICORT [Concomitant]
     Indication: ASTHMA
     Dates: start: 20060101
  3. ATROVENT HFA [Suspect]
     Indication: CHRONIC OBSTRUCTIVE PULMONARY DISEASE
     Dosage: 17 MCG
     Route: 055
     Dates: start: 20110201, end: 20110510
  4. LISINOPRIL [Concomitant]
     Indication: HYPERTENSION
     Dates: start: 20060101
  5. PROAIR HFA [Concomitant]
     Indication: CHRONIC OBSTRUCTIVE PULMONARY DISEASE
     Dates: start: 20060101

REACTIONS (1)
  - ABDOMINAL DISCOMFORT [None]
